FAERS Safety Report 20115755 (Version 1)
Quarter: 2021Q4

REPORT INFORMATION
  Report Type: Report from Study
  Country: US (occurrence: US)
  Receive Date: 20211126
  Receipt Date: 20211126
  Transmission Date: 20220303
  Serious: Yes (Death)
  Sender: FDA-Public Use
  Company Number: US-BoehringerIngelheim-2021-BI-124199

PATIENT
  Age: 73 Year
  Sex: Female

DRUGS (2)
  1. OFEV [Suspect]
     Active Substance: NINTEDANIB
     Indication: Idiopathic pulmonary fibrosis
     Route: 048
     Dates: start: 20210816
  2. OFEV [Suspect]
     Active Substance: NINTEDANIB
     Dosage: FREQUENCY UNIT :DAY?FREQUENCY : 1 ?DOSAGE TEXT : 1 BID
     Route: 048

REACTIONS (2)
  - Lung disorder [Fatal]
  - Malaise [Not Recovered/Not Resolved]

NARRATIVE: CASE EVENT DATE: 20210830
